FAERS Safety Report 8851985 (Version 1)
Quarter: 2012Q4

REPORT INFORMATION
  Report Type: Report from Study
  Country: CN (occurrence: CN)
  Receive Date: 20121022
  Receipt Date: 20121022
  Transmission Date: 20130627
  Serious: Yes (Hospitalization, Other)
  Sender: FDA-Public Use
  Company Number: US-ASTELLAS-2012US010057

PATIENT
  Age: 66 None
  Sex: Male

DRUGS (2)
  1. ERLOTINIB TABLET [Suspect]
     Indication: NON-SMALL CELL LUNG CANCER
     Dosage: 150 mg, UID/QD
     Route: 048
     Dates: start: 20120908, end: 20120926
  2. ERLOTINIB TABLET [Suspect]
     Dosage: 150 mg, UID/QD
     Route: 048
     Dates: start: 20121009

REACTIONS (5)
  - Haemoptysis [Recovering/Resolving]
  - Conjunctivitis [Recovering/Resolving]
  - Oedema peripheral [Recovering/Resolving]
  - Bone pain [Recovering/Resolving]
  - Rash [Recovering/Resolving]
